FAERS Safety Report 7859974-9 (Version None)
Quarter: 2011Q4

REPORT INFORMATION
  Report Type: 
  Country: None (occurrence: None)
  Receive Date: 20111026
  Receipt Date: 20111026
  Transmission Date: 20120403
  Serious: No
  Sender: FDA-Public Use
  Company Number: None

PATIENT
  Sex: Male

DRUGS (1)
  1. DEPAKOTE [Suspect]
     Dosage: GENERIC DEPAKOTE PO 250 AM 500MG HS
     Route: 048
     Dates: start: 20080801

REACTIONS (3)
  - AGGRESSION [None]
  - PRODUCT SUBSTITUTION ISSUE [None]
  - IRRITABILITY [None]
